FAERS Safety Report 23366539 (Version 1)
Quarter: 2024Q1

REPORT INFORMATION
  Report Type: Spontaneous
  Country: FR (occurrence: FR)
  Receive Date: 20240104
  Receipt Date: 20240104
  Transmission Date: 20240410
  Serious: Yes (Hospitalization)
  Sender: FDA-Public Use
  Company Number: None

PATIENT
  Age: 75 Year

DRUGS (4)
  1. GLIMEPIRIDE [Suspect]
     Active Substance: GLIMEPIRIDE
     Indication: Product used for unknown indication
     Dosage: TIME INTERVAL: 1 TOTAL: 1 TAB OF 2 MG
     Route: 048
     Dates: start: 20230517, end: 20230517
  2. ALPRAZOLAM [Concomitant]
     Active Substance: ALPRAZOLAM
     Indication: Product used for unknown indication
     Dosage: TIME INTERVAL: 1 TOTAL: 1 TAB OF 0.5 MG
     Route: 048
     Dates: start: 20230517, end: 20230517
  3. CYAMEMAZINE [Concomitant]
     Active Substance: CYAMEMAZINE
     Indication: Product used for unknown indication
     Dosage: TIME INTERVAL: 1 TOTAL: 1 TAB OF 25 MG
     Route: 048
     Dates: start: 20230517, end: 20230517
  4. TRIHEXYPHENIDYL HYDROCHLORIDE [Concomitant]
     Active Substance: TRIHEXYPHENIDYL HYDROCHLORIDE
     Indication: Product used for unknown indication
     Dosage: TIME INTERVAL: 1 TOTAL: 1 TAB OF 2 MG
     Route: 048
     Dates: start: 20230517, end: 20230517

REACTIONS (2)
  - Hypoglycaemia [Recovered/Resolved]
  - Wrong patient received product [Recovered/Resolved]

NARRATIVE: CASE EVENT DATE: 20230517
